FAERS Safety Report 14165133 (Version 2)
Quarter: 2018Q4

REPORT INFORMATION
  Report Type: Spontaneous
  Country: JP (occurrence: JP)
  Receive Date: 20171107
  Receipt Date: 20181109
  Transmission Date: 20190204
  Serious: Yes (Other)
  Sender: FDA-Public Use
  Company Number: JP-BAYER-2017-207682

PATIENT
  Age: 82 Year
  Sex: Male

DRUGS (4)
  1. STIVARGA [Suspect]
     Active Substance: REGORAFENIB
     Indication: HEPATOCELLULAR CARCINOMA
     Dosage: DAILY DOSE 80 MG, ADMINISTERED 3WEEKS ON/ 1WEEK OFF
     Route: 048
  2. STIVARGA [Suspect]
     Active Substance: REGORAFENIB
     Indication: HEPATOCELLULAR CARCINOMA
     Dosage: DAILY DOSE 160 MG, ADMINISTERED 3WEEKS ON/ 1WEEK OFF
     Route: 048
     Dates: start: 20170821, end: 20171025
  3. NEXAVAR [Suspect]
     Active Substance: SORAFENIB
     Indication: HEPATOCELLULAR CARCINOMA
     Dosage: VERY RECENT PAST DAILY DOSE 400MG
     Route: 048
  4. STIVARGA [Suspect]
     Active Substance: REGORAFENIB
     Indication: HEPATOCELLULAR CARCINOMA
     Dosage: DAILY DOSE 120 MG, ADMINISTERED 3WEEKS ON/ 1WEEK OFF
     Route: 048

REACTIONS (3)
  - Hepatocellular carcinoma [Recovered/Resolved]
  - Metastases to central nervous system [Recovered/Resolved]
  - Palmar-plantar erythrodysaesthesia syndrome [None]

NARRATIVE: CASE EVENT DATE: 20171025
